FAERS Safety Report 7888171-6 (Version None)
Quarter: 2011Q4

REPORT INFORMATION
  Report Type: 
  Country: None (occurrence: None)
  Receive Date: 20111102
  Receipt Date: 20111102
  Transmission Date: 20120403
  Serious: Yes (Hospitalization)
  Sender: FDA-Public Use
  Company Number: None

PATIENT
  Sex: Female
  Weight: 42.9 kg

DRUGS (6)
  1. CYTARABINE [Suspect]
     Dosage: 190 MG
  2. PREDNISONE [Suspect]
     Dosage: 1515 MG
  3. PEG-L- ASPARAGINASE (K- H) [Suspect]
     Dosage: 13400 MG
  4. METHOTREXATE [Suspect]
     Dosage: 80 MG
  5. VINCRISTINE SULFATE [Suspect]
     Dosage: 8 MG
  6. DOXORUBICIN HCL [Suspect]
     Dosage: 80 MG

REACTIONS (26)
  - CONSTIPATION [None]
  - AXILLARY VEIN THROMBOSIS [None]
  - SUBCLAVIAN ARTERY OCCLUSION [None]
  - ZYGOMYCOSIS [None]
  - HYPERBILIRUBINAEMIA [None]
  - JUGULAR VEIN THROMBOSIS [None]
  - PERIPHERAL ARTERIAL OCCLUSIVE DISEASE [None]
  - HAEMODYNAMIC INSTABILITY [None]
  - PYREXIA [None]
  - BACK PAIN [None]
  - COAGULOPATHY [None]
  - RESPIRATORY DISTRESS [None]
  - RESPIRATORY FAILURE [None]
  - LUNG INFILTRATION [None]
  - NEUTROPENIA [None]
  - ABDOMINAL PAIN UPPER [None]
  - WEIGHT INCREASED [None]
  - PNEUMONIA [None]
  - SEPSIS [None]
  - SUBCLAVIAN VEIN THROMBOSIS [None]
  - BLOOD LACTATE DEHYDROGENASE ABNORMAL [None]
  - VENOOCCLUSIVE DISEASE [None]
  - ACIDOSIS [None]
  - ARTHRALGIA [None]
  - DISSEMINATED INTRAVASCULAR COAGULATION [None]
  - CONTINUOUS HAEMODIAFILTRATION [None]
